FAERS Safety Report 6815144-4 (Version None)
Quarter: 2010Q2

REPORT INFORMATION
  Report Type: 
  Country: None (occurrence: None)
  Receive Date: 20100630
  Receipt Date: 20100630
  Transmission Date: 20101027
  Serious: Yes (Hospitalization)
  Sender: FDA-Public Use
  Company Number: None

PATIENT
  Age: 46 Year
  Sex: Male

DRUGS (2)
  1. RALTEGRAVIR 400MG MERCK [Suspect]
     Indication: HIV INFECTION
     Dosage: 400 MG. B.I.D.
     Dates: start: 20100202
  2. RALTEGRAVIR 400MG MERCK [Suspect]
     Indication: PAIN
     Dosage: 400 MG. B.I.D.
     Dates: start: 20100202

REACTIONS (6)
  - BACK PAIN [None]
  - CHEST PAIN [None]
  - DYSPNOEA [None]
  - FALL [None]
  - HYPERHIDROSIS [None]
  - PAIN [None]
